FAERS Safety Report 4679840-X (Version None)
Quarter: 2005Q2

REPORT INFORMATION
  Report Type: 
  Country: None (occurrence: None)
  Receive Date: 20050602
  Receipt Date: 20050104
  Transmission Date: 20051028
  Serious: No
  Sender: FDA-Public Use
  Company Number: US-GLAXOSMITHKLINE-A0539279A

PATIENT
  Age: 14 Year
  Sex: Male

DRUGS (1)
  1. AUGMENTIN [Suspect]
     Indication: EAR INFECTION
     Route: 048

REACTIONS (1)
  - DYSPHAGIA [None]
